FAERS Safety Report 8326449-2 (Version None)
Quarter: 2012Q2

REPORT INFORMATION
  Report Type: 
  Country: None (occurrence: None)
  Receive Date: 20120501
  Receipt Date: 20120426
  Transmission Date: 20120825
  Serious: Yes (Other)
  Sender: FDA-Public Use
  Company Number: PHHY2009CA07431

PATIENT
  Sex: Male

DRUGS (3)
  1. SANDOSTATIN LAR [Suspect]
     Dosage: 30 MG, QMO
     Route: 030
  2. SANDOSTATIN LAR [Suspect]
     Indication: CARCINOID TUMOUR
     Dosage: 30 MG, QMO
     Route: 030
     Dates: start: 20080712
  3. SANDOSTATIN LAR [Suspect]
     Dosage: 30 MG, EVERY 4 WEEKS
     Route: 030

REACTIONS (14)
  - FLATULENCE [None]
  - ACTIVITIES OF DAILY LIVING IMPAIRED [None]
  - NIGHTMARE [None]
  - ABDOMINAL DISTENSION [None]
  - JOINT STIFFNESS [None]
  - DIARRHOEA [None]
  - POOR QUALITY SLEEP [None]
  - ABDOMINAL PAIN [None]
  - FATIGUE [None]
  - ARTHRALGIA [None]
  - INJECTION SITE HAEMORRHAGE [None]
  - PAIN [None]
  - PORTAL VEIN THROMBOSIS [None]
  - BLOOD PRESSURE SYSTOLIC INCREASED [None]
